FAERS Safety Report 9526081 (Version 2)
Quarter: 2013Q3

REPORT INFORMATION
  Report Type: Spontaneous
  Country: US (occurrence: US)
  Receive Date: 20130916
  Receipt Date: 20130916
  Transmission Date: 20140515
  Serious: Yes (Other)
  Sender: FDA-Public Use
  Company Number: US-GLENMARK GENERICS INC.-2013GMK006679

PATIENT
  Age: 9 Year
  Sex: Female

DRUGS (5)
  1. ZONISAMIDE [Suspect]
     Indication: CONVULSION
     Dosage: 100 MG, QD
     Route: 048
     Dates: start: 20130523
  2. ZONISAMIDE [Suspect]
     Dosage: 200 MG, QD
     Route: 048
     Dates: start: 20130605
  3. MELATONIN [Concomitant]
     Indication: PRODUCT USED FOR UNKNOWN INDICATION
     Dosage: UNK
  4. MIRALAX [Concomitant]
     Indication: PRODUCT USED FOR UNKNOWN INDICATION
     Dosage: UNK
  5. KEPPRA [Concomitant]
     Indication: PRODUCT USED FOR UNKNOWN INDICATION
     Dosage: UNK

REACTIONS (2)
  - Fall [Recovering/Resolving]
  - Tremor [Unknown]
